FAERS Safety Report 20327452 (Version 1)
Quarter: 2022Q1

REPORT INFORMATION
  Report Type: Spontaneous
  Country: BR (occurrence: BR)
  Receive Date: 20220112
  Receipt Date: 20220112
  Transmission Date: 20220423
  Serious: Yes (Hospitalization, Other)
  Sender: FDA-Public Use
  Company Number: BR-BoehringerIngelheim-2022-BI-146927

PATIENT
  Age: 40 Year
  Sex: Female
  Weight: 90 kg

DRUGS (9)
  1. BEROTEC [Suspect]
     Active Substance: FENOTEROL HYDROBROMIDE
     Indication: Asthma
     Dosage: 6 OR 7 DROPS IN EVERY 4 OR 5 DAYS?FORM OF ADMINISTRATION:- DROPS
     Route: 055
     Dates: start: 2009
  2. ATROVENT [Suspect]
     Active Substance: IPRATROPIUM BROMIDE
     Indication: Asthma
     Dosage: AROUND 20 DROPS IN EVERY 4 OR 5 DAYS, FORM OF ADMINISTRATION:- DROP
     Route: 055
     Dates: start: 2009
  3. PREDNISONE [Suspect]
     Active Substance: PREDNISONE
     Indication: Asthmatic crisis
  4. ATENOLOL [Concomitant]
     Active Substance: ATENOLOL
     Indication: Hypertension
  5. ALBUTEROL [Concomitant]
     Active Substance: ALBUTEROL
     Indication: Asthma
     Dosage: 3 PUFFS IN EXTREME NEED
  6. BECLOMETHASONE DIPROPIONATE [Concomitant]
     Active Substance: BECLOMETHASONE DIPROPIONATE
     Indication: Asthma
     Dosage: 200 MG, 1 PUFF EVERY 12H
  7. HYDROCHLOROTHIAZIDE [Concomitant]
     Active Substance: HYDROCHLOROTHIAZIDE
     Indication: Hypertension
  8. COVID-19 vaccine [Concomitant]
     Indication: COVID-19
     Dosage: 2 DOSES AND THE BOOSTER DOSE
  9. INFLUENZA VIRUS VACCINE [Concomitant]
     Active Substance: INFLUENZA VIRUS VACCINE
     Indication: Influenza

REACTIONS (11)
  - Asthmatic crisis [Not Recovered/Not Resolved]
  - Asthmatic crisis [Recovered/Resolved]
  - Back pain [Not Recovered/Not Resolved]
  - Asthma [Unknown]
  - Swelling [Unknown]
  - Dyspnoea [Unknown]
  - Obesity [Unknown]
  - Tremor [Unknown]
  - Tachycardia [Unknown]
  - Drug ineffective [Unknown]
  - Pain [Unknown]

NARRATIVE: CASE EVENT DATE: 20090101
